FAERS Safety Report 6945893-9 (Version None)
Quarter: 2010Q3

REPORT INFORMATION
  Report Type: 
  Country: None (occurrence: None)
  Receive Date: 20100827
  Receipt Date: 20100825
  Transmission Date: 20110219
  Serious: Yes (Hospitalization, Other)
  Sender: FDA-Public Use
  Company Number: JP-ROXANE LABORATORIES, INC.-2010-RO-01138RO

PATIENT
  Age: 51 Year
  Sex: Male

DRUGS (15)
  1. RISPERIDONE [Suspect]
     Indication: SCHIZOPHRENIA
  2. TELMISARTAN [Suspect]
     Indication: HYPERTENSION
     Dosage: 20 MG
  3. CANDESARTAN [Suspect]
     Indication: HYPERTENSION
     Dosage: 4 MG
  4. FELODIPINE [Suspect]
  5. FLUVASTATIN [Suspect]
  6. METFORMIN [Suspect]
  7. CLONAZEPAM [Suspect]
     Indication: SCHIZOPHRENIA
  8. BROMAZEPAM [Suspect]
     Indication: SCHIZOPHRENIA
  9. LEVOMEPROMAZINE [Suspect]
     Indication: SCHIZOPHRENIA
  10. VALPROATE SODIUM [Suspect]
     Indication: SCHIZOPHRENIA
  11. PIPERIDINE [Suspect]
     Indication: SCHIZOPHRENIA
  12. INSULIN ASPART [Suspect]
     Indication: DIABETES MELLITUS
  13. INSULIN ASPART [Suspect]
  14. NPH INSULIN [Suspect]
     Indication: DIABETES MELLITUS
  15. NPH INSULIN [Suspect]

REACTIONS (6)
  - BLOOD PROLACTIN INCREASED [None]
  - DIABETES MELLITUS INADEQUATE CONTROL [None]
  - HYPERTENSION [None]
  - METABOLIC DISORDER [None]
  - NEUROPATHY PERIPHERAL [None]
  - OBESITY [None]
